FAERS Safety Report 7921402-2 (Version None)
Quarter: 2011Q4

REPORT INFORMATION
  Report Type: 
  Country: None (occurrence: None)
  Receive Date: 20111117
  Receipt Date: 20111109
  Transmission Date: 20120403
  Serious: Yes (Other)
  Sender: FDA-Public Use
  Company Number: US-RB-029852-11

PATIENT
  Age: 70 Year
  Sex: Male

DRUGS (1)
  1. MUCINEX DM [Suspect]
     Indication: PRODUCT USED FOR UNKNOWN INDICATION
     Route: 048

REACTIONS (1)
  - URINARY BLADDER HAEMORRHAGE [None]
